FAERS Safety Report 7249280-8 (Version None)
Quarter: 2011Q1

REPORT INFORMATION
  Report Type: 
  Country: None (occurrence: None)
  Receive Date: 20110128
  Receipt Date: 20101123
  Transmission Date: 20110831
  Serious: Yes (Other)
  Sender: FDA-Public Use
  Company Number: US-BAYER-201037997NA

PATIENT
  Sex: Female
  Weight: 83.9 kg

DRUGS (14)
  1. AMOXICILLIN [Concomitant]
  2. FOLIC ACID [Concomitant]
  3. BUSPAR [Concomitant]
     Indication: BIPOLAR DISORDER
  4. UNCODEABLE ^UNCLASSIFIABLE^ [Concomitant]
  5. DEPAKOTE [Concomitant]
     Indication: BIPOLAR DISORDER
  6. LEVBID [Concomitant]
     Indication: IRRITABLE BOWEL SYNDROME
  7. ALBUTEROL [Concomitant]
  8. UNCODEABLE ^UNCLASSIFIABLE^ [Concomitant]
     Indication: PAIN
  9. ZOLOFT [Concomitant]
     Indication: BIPOLAR DISORDER
  10. CORTICOSTEROIDS [Concomitant]
     Indication: UPPER RESPIRATORY TRACT INFECTION
  11. YAZ [Suspect]
     Indication: ACNE
     Dosage: UNK
     Dates: start: 20040101
  12. OCELLA [Suspect]
     Indication: ACNE
     Dosage: UNK
  13. YASMIN [Suspect]
     Indication: ACNE
     Dosage: UNK
  14. FIORICET [Concomitant]

REACTIONS (2)
  - SCAR [None]
  - GALLBLADDER DISORDER [None]
